FAERS Safety Report 8952820 (Version 4)
Quarter: 2013Q2

REPORT INFORMATION
  Report Type: Not Available
  Country: FR (occurrence: FR)
  Receive Date: 20121204
  Receipt Date: 20130410
  Transmission Date: 20140414
  Serious: Yes (Death, Hospitalization, Other)
  Sender: FDA-Public Use
  Company Number: FR-NAPPMUNDI-GBR-2012-0012207

PATIENT
  Age: 50 Year
  Sex: Male

DRUGS (15)
  1. OXYCONTIN LP, COMPRIME PELLICULE A LIBERATION PROLONGEE [Suspect]
     Indication: PRODUCT USED FOR UNKNOWN INDICATION
     Dosage: UNK
     Route: 048
  2. LEVACT [Suspect]
     Indication: PLASMA CELL MYELOMA
     Dosage: 120 MG/M2, EVERY 4 WEEKS (LAST CHEMOTHERAPY CYCLE)
     Route: 042
     Dates: start: 20120919, end: 20121022
  3. LEVACT [Suspect]
     Dosage: 120 MG/M2, EVERY 4 WEEKS
     Route: 042
     Dates: start: 20120425
  4. HALDOL [Suspect]
     Indication: PRODUCT USED FOR UNKNOWN INDICATION
     Dosage: 0.5 MG, DAILY
     Route: 048
  5. INEXIUM [Suspect]
     Indication: PRODUCT USED FOR UNKNOWN INDICATION
     Dosage: 40 MG, DAILY
     Route: 048
  6. BACTRIM [Suspect]
     Indication: PRODUCT USED FOR UNKNOWN INDICATION
     Dosage: 1 DF, 3/WEEK
     Route: 048
  7. BACLOFEN [Suspect]
     Indication: PRODUCT USED FOR UNKNOWN INDICATION
     Dosage: 2 DF, TID
     Route: 048
  8. COLTRAMYL [Suspect]
     Indication: PRODUCT USED FOR UNKNOWN INDICATION
     Dosage: 4 MG, TID
     Route: 048
  9. LASILIX /00032601/ [Suspect]
     Indication: PRODUCT USED FOR UNKNOWN INDICATION
     Dosage: 20 MG, DAILY
     Route: 048
  10. LYRICA [Suspect]
     Indication: PRODUCT USED FOR UNKNOWN INDICATION
     Dosage: 450 MG, DAILY
     Route: 048
  11. TOPALGIC /00599202/ [Suspect]
     Indication: PRODUCT USED FOR UNKNOWN INDICATION
     Dosage: 100 MG, BID
     Route: 048
  12. DAFALGAN [Suspect]
     Indication: PRODUCT USED FOR UNKNOWN INDICATION
     Dosage: 4 G, DAILY
     Route: 048
  13. ZOPICLONE [Suspect]
     Indication: PRODUCT USED FOR UNKNOWN INDICATION
     Route: 065
  14. LAROXYL [Suspect]
     Indication: NEURALGIA
     Dosage: 40 MG/ML, DAILY
     Route: 048
  15. TEMESTA [Suspect]
     Dosage: 2.5 MG, DAILY
     Route: 065

REACTIONS (7)
  - Jaundice cholestatic [Fatal]
  - Plasma cell myeloma [Fatal]
  - Staphylococcal bacteraemia [Fatal]
  - Kidney infection [Not Recovered/Not Resolved]
  - Sepsis [Unknown]
  - Anaemia [Unknown]
  - Femoral neck fracture [Unknown]
